APPROVED DRUG PRODUCT: AMBRISENTAN
Active Ingredient: AMBRISENTAN
Strength: 10MG
Dosage Form/Route: TABLET;ORAL
Application: A210715 | Product #002 | TE Code: AB
Applicant: CIPLA LTD
Approved: Apr 26, 2019 | RLD: No | RS: No | Type: RX